FAERS Safety Report 7847679 (Version 2)
Quarter: 2013Q2

REPORT INFORMATION
  Report Type: Report from Study
  Country: MX (occurrence: MX)
  Receive Date: 20110309
  Receipt Date: 20130527
  Transmission Date: 20140414
  Serious: Yes (Hospitalization, Other)
  Sender: FDA-Public Use
  Company Number: PHHY2011MX16513

PATIENT
  Age: 40 Year
  Sex: Female

DRUGS (1)
  1. ZELMAC [Suspect]
     Indication: IRRITABLE BOWEL SYNDROME
     Dosage: 2 DF (6 MG) DAILY
     Route: 048
     Dates: start: 201008

REACTIONS (2)
  - Peritonitis [Recovered/Resolved]
  - Diverticular perforation [Recovered/Resolved]
